FAERS Safety Report 10268544 (Version 1)
Quarter: 2014Q2

REPORT INFORMATION
  Report Type: Spontaneous
  Country: FR (occurrence: FR)
  Receive Date: 20140630
  Receipt Date: 20140630
  Transmission Date: 20141212
  Serious: Yes (Other)
  Sender: FDA-Public Use
  Company Number: FR-FRI-1000068573

PATIENT
  Sex: Male

DRUGS (7)
  1. MILNACIPRAN [Suspect]
     Dosage: 50 MG
     Route: 048
     Dates: start: 20140314, end: 201403
  2. MILNACIPRAN [Suspect]
     Dosage: 100 MG
     Route: 048
     Dates: start: 20140320, end: 20140324
  3. MILNACIPRAN [Suspect]
     Dosage: 75 MG
     Route: 048
     Dates: start: 20140325, end: 20140327
  4. MILNACIPRAN [Suspect]
     Dosage: 50 MG
     Route: 048
     Dates: start: 20140328, end: 20140329
  5. XANAX [Suspect]
     Dates: start: 20140225
  6. CYMBALTA [Concomitant]
     Dates: start: 20140206, end: 20140320
  7. DEPAKOTE [Concomitant]
     Dates: start: 20140225

REACTIONS (2)
  - Vertigo [Unknown]
  - Diarrhoea [Unknown]
